FAERS Safety Report 7815183-0 (Version None)
Quarter: 2011Q4

REPORT INFORMATION
  Report Type: 
  Country: None (occurrence: None)
  Receive Date: 20111014
  Receipt Date: 20111004
  Transmission Date: 20120403
  Serious: Yes (Hospitalization)
  Sender: FDA-Public Use
  Company Number: FR-EISAI INC-E7273-00233-SPO-FR

PATIENT
  Sex: Female
  Weight: 81 kg

DRUGS (5)
  1. TARGRETIN [Suspect]
     Route: 048
  2. TARGRETIN [Suspect]
     Indication: MYCOSIS FUNGOIDES
     Route: 048
  3. TARGRETIN [Suspect]
     Route: 048
     Dates: start: 20110128
  4. XERIAL 10 [Concomitant]
  5. LIPANTHYL 160 [Concomitant]
     Dates: start: 20110224

REACTIONS (4)
  - DRUG INEFFECTIVE [None]
  - OEDEMA PERIPHERAL [None]
  - ERYTHEMA [None]
  - HYPERTRIGLYCERIDAEMIA [None]
